FAERS Safety Report 7523166-3 (Version None)
Quarter: 2011Q2

REPORT INFORMATION
  Report Type: 
  Country: None (occurrence: None)
  Receive Date: 20110603
  Receipt Date: 20110601
  Transmission Date: 20111010
  Serious: Yes (Hospitalization, Other)
  Sender: FDA-Public Use
  Company Number: US-UCBSA-031922

PATIENT
  Sex: Female
  Weight: 68.94 kg

DRUGS (8)
  1. CIMZIA [Suspect]
     Indication: CROHN'S DISEASE
     Route: 058
     Dates: start: 20090102
  2. PREDNISONE [Concomitant]
     Route: 048
  3. QUESTRAN [Concomitant]
     Indication: DIARRHOEA
     Dosage: 1SCOOP AS NEEDED
     Route: 048
  4. COUMADIN [Concomitant]
     Dosage: DOSE PER INTAKE: VARIES FROM 5-10MG DAILY
     Route: 048
  5. VITAMIN TAB [Concomitant]
     Dosage: 1PILL DAILY
     Route: 048
  6. PREDNISONE [Concomitant]
     Dosage: TAPERING OFF
     Route: 048
  7. POTASSIUM CHLORIDE [Concomitant]
     Route: 048
  8. IMODIUM [Concomitant]
     Route: 048

REACTIONS (10)
  - OVARIAN CYST RUPTURED [None]
  - ORAL CANDIDIASIS [None]
  - INTESTINAL OBSTRUCTION [None]
  - MALAISE [None]
  - WEIGHT DECREASED [None]
  - CLOSTRIDIAL INFECTION [None]
  - DIABETES MELLITUS [None]
  - INSOMNIA [None]
  - VISUAL IMPAIRMENT [None]
  - DYSGEUSIA [None]
